FAERS Safety Report 20857609 (Version 1)
Quarter: 2022Q2

REPORT INFORMATION
  Report Type: Spontaneous
  Country: US (occurrence: US)
  Receive Date: 20220521
  Receipt Date: 20220521
  Transmission Date: 20220721
  Serious: No
  Sender: FDA-Public Use
  Company Number: US-Accord-240136

PATIENT
  Sex: Male

DRUGS (1)
  1. METHOTREXATE [Suspect]
     Active Substance: METHOTREXATE
     Indication: Product used for unknown indication
     Dosage: STRENGTH: 50 MG/2ML SINGLE USE INJECTABLE , 0.7ML/WEEK
     Route: 048

REACTIONS (1)
  - Incorrect route of product administration [Unknown]
